FAERS Safety Report 20132912 (Version 7)
Quarter: 2022Q2

REPORT INFORMATION
  Report Type: Report from Study
  Country: US (occurrence: US)
  Receive Date: 20211130
  Receipt Date: 20220607
  Transmission Date: 20220720
  Serious: Yes (Other)
  Sender: FDA-Public Use
  Company Number: US-NOVARTISTESTPH-NVSC2021US272373

PATIENT
  Age: 56 Year
  Sex: Female

DRUGS (9)
  1. ENTRESTO [Suspect]
     Active Substance: SACUBITRIL\VALSARTAN
     Indication: Cardiac failure chronic
     Dosage: UNK100 MG (49/51 MG)
     Route: 048
     Dates: start: 20210930
  2. ENTRESTO [Suspect]
     Active Substance: SACUBITRIL\VALSARTAN
     Dosage: 100 MG, BID (49/51 MG)
     Route: 048
  3. CARVEDILOL [Suspect]
     Active Substance: CARVEDILOL
     Indication: Hypertension
     Dosage: UNK
     Route: 048
     Dates: start: 20210812
  4. CARVEDILOL [Suspect]
     Active Substance: CARVEDILOL
     Dosage: 6.25 MG, BID
     Route: 065
     Dates: start: 20210812
  5. CARVEDILOL [Suspect]
     Active Substance: CARVEDILOL
     Dosage: 12.5 MG, BID
     Route: 065
     Dates: start: 20210930
  6. LASIX [Concomitant]
     Active Substance: FUROSEMIDE
     Indication: Product used for unknown indication
     Dosage: 40 MG, QD
     Route: 065
     Dates: start: 20210930
  7. LASIX [Concomitant]
     Active Substance: FUROSEMIDE
     Dosage: UNK
     Route: 065
     Dates: start: 20210930
  8. SPIRONOLACTONE [Concomitant]
     Active Substance: SPIRONOLACTONE
     Indication: Product used for unknown indication
     Dosage: 25 MG, BID
     Route: 065
     Dates: start: 20210930
  9. KCL [Concomitant]
     Active Substance: POTASSIUM CHLORIDE
     Indication: Product used for unknown indication
     Dosage: 10 MG
     Route: 065
     Dates: start: 20210812

REACTIONS (6)
  - Hypotension [Not Recovered/Not Resolved]
  - Dizziness [Unknown]
  - Insomnia [Unknown]
  - Cardiac disorder [Unknown]
  - Neck pain [Unknown]
  - Wrong technique in product usage process [Unknown]

NARRATIVE: CASE EVENT DATE: 20210801
